FAERS Safety Report 19085897 (Version 2)
Quarter: 2021Q2

REPORT INFORMATION
  Report Type: Spontaneous
  Country: IN (occurrence: IN)
  Receive Date: 20210402
  Receipt Date: 20210406
  Transmission Date: 20210717
  Serious: Yes (Hospitalization, Other)
  Sender: FDA-Public Use
  Company Number: IN-LUPIN LIMITED-2021-04110

PATIENT
  Age: 38 Year
  Sex: Male

DRUGS (17)
  1. CLONAZEPAM. [Concomitant]
     Active Substance: CLONAZEPAM
     Indication: ANXIETY
     Dosage: 0.75 MILLIGRAM
     Route: 065
  2. AMISULPRIDE [Interacting]
     Active Substance: AMISULPRIDE
     Indication: SCHIZOPHRENIA
     Dosage: 12.5 MILLIGRAM, QD
     Route: 065
  3. AMISULPRIDE [Interacting]
     Active Substance: AMISULPRIDE
     Dosage: INCREASED GRADUALLY BY 12.5 MG EVERY ALTERNATE DAY
     Route: 065
  4. CLOZAPINE. [Interacting]
     Active Substance: CLOZAPINE
     Indication: SCHIZOPHRENIA
     Dosage: 12.5 MILLIGRAM, QD
     Route: 065
  5. CLOZAPINE. [Interacting]
     Active Substance: CLOZAPINE
     Dosage: 137.5 MILLIGRAM, QD
     Route: 065
  6. CLOZAPINE. [Interacting]
     Active Substance: CLOZAPINE
     Dosage: 125 MILLIGRAM
     Route: 065
  7. CLONAZEPAM. [Concomitant]
     Active Substance: CLONAZEPAM
     Dosage: UNK, GRADUALLY TAPERED AND STOPPED IN THE NEXT 4 DAYS
     Route: 065
  8. ARIPIPRAZOLE. [Concomitant]
     Active Substance: ARIPIPRAZOLE
     Dosage: 30 MILLIGRAM, QD
     Route: 065
  9. FLUOXETINE [Suspect]
     Active Substance: FLUOXETINE HYDROCHLORIDE
     Indication: OBSESSIVE-COMPULSIVE DISORDER
     Dosage: UNK
     Route: 065
  10. AMISULPRIDE [Interacting]
     Active Substance: AMISULPRIDE
     Dosage: 137.5 MILLIGRAM, QD
     Route: 065
  11. ARIPIPRAZOLE. [Concomitant]
     Active Substance: ARIPIPRAZOLE
     Indication: SCHIZOPHRENIA
     Dosage: 10 MILLIGRAM
     Route: 065
  12. FLUOXETINE [Interacting]
     Active Substance: FLUOXETINE HYDROCHLORIDE
     Dosage: 80 MILLIGRAM, QD
     Route: 065
  13. AMISULPRIDE [Interacting]
     Active Substance: AMISULPRIDE
     Dosage: 125 MILLIGRAM, QD
     Route: 065
  14. CLOZAPINE. [Interacting]
     Active Substance: CLOZAPINE
     Dosage: 125 MILLIGRAM, QD
     Route: 065
  15. CLOZAPINE. [Interacting]
     Active Substance: CLOZAPINE
     Dosage: UNK, DOSE HIKE WAS ATTEMPTED AS EARLIER
     Route: 065
  16. CLOZAPINE. [Interacting]
     Active Substance: CLOZAPINE
     Dosage: 125 MILLIGRAM
     Route: 065
  17. ATENOLOL. [Concomitant]
     Active Substance: ATENOLOL
     Indication: SINUS TACHYCARDIA
     Dosage: 25 MILLIGRAM, QD
     Route: 065

REACTIONS (7)
  - Drug interaction [Unknown]
  - Muscle twitching [Recovered/Resolved]
  - Dysphemia [Recovered/Resolved]
  - Antipsychotic drug level increased [Unknown]
  - Schizophrenia [Unknown]
  - Generalised tonic-clonic seizure [Recovered/Resolved]
  - Sinus tachycardia [Unknown]
